FAERS Safety Report 9436994 (Version 1)
Quarter: 2013Q3

REPORT INFORMATION
  Report Type: Spontaneous
  Country: US (occurrence: US)
  Receive Date: 20130802
  Receipt Date: 20130802
  Transmission Date: 20140515
  Serious: No
  Sender: FDA-Public Use
  Company Number: US-PFIZER INC-2013225429

PATIENT
  Sex: Female

DRUGS (3)
  1. PRISTIQ [Suspect]
     Indication: DEPRESSION
     Dosage: 100 MG, UNK
     Route: 048
  2. LOTENSIN [Concomitant]
     Dosage: 40 MG, UNK
  3. WELLBUTRIN [Concomitant]
     Dosage: 150 MG, UNK

REACTIONS (1)
  - Hair colour changes [Unknown]
